FAERS Safety Report 24206333 (Version 3)
Quarter: 2024Q3

REPORT INFORMATION
  Report Type: Spontaneous
  Country: US (occurrence: US)
  Receive Date: 20240813
  Receipt Date: 20240913
  Transmission Date: 20241017
  Serious: No
  Sender: PFIZER
  Company Number: US-PFIZER INC-202400235573

PATIENT
  Age: 82 Year
  Sex: Female
  Weight: 71.67 kg

DRUGS (1)
  1. PREMARIN [Suspect]
     Active Substance: ESTROGENS, CONJUGATED
     Indication: Hot flush
     Dosage: 0.3 MG, 1X/DAY
     Route: 048

REACTIONS (5)
  - Nervousness [Unknown]
  - Tremor [Unknown]
  - Malaise [Unknown]
  - Dizziness [Unknown]
  - Confusional state [Unknown]
